FAERS Safety Report 4401605-4 (Version None)
Quarter: 2004Q3

REPORT INFORMATION
  Report Type: 
  Country: None (occurrence: None)
  Receive Date: 20040719
  Receipt Date: 20040712
  Transmission Date: 20050211
  Serious: Yes (Hospitalization, Other)
  Sender: FDA-Public Use
  Company Number: US-BRISTOL-MYERS SQUIBB COMPANY-12639860

PATIENT
  Sex: Female

DRUGS (2)
  1. SUSTIVA [Suspect]
     Indication: HIV INFECTION
     Route: 048
     Dates: start: 20040101
  2. COMBIVIR [Concomitant]
     Route: 048
     Dates: start: 20040101

REACTIONS (2)
  - GASTROINTESTINAL HAEMORRHAGE [None]
  - MEDICATION ERROR [None]
